FAERS Safety Report 4986779-9 (Version None)
Quarter: 2006Q2

REPORT INFORMATION
  Report Type: 
  Country: None (occurrence: None)
  Receive Date: 20060428
  Receipt Date: 20041222
  Transmission Date: 20061013
  Serious: Yes (Hospitalization, Disabling)
  Sender: FDA-Public Use
  Company Number: US-MERCK-0412USA02834

PATIENT
  Age: 67 Year
  Sex: Male

DRUGS (9)
  1. VIOXX [Suspect]
     Route: 048
     Dates: start: 20000401, end: 20031201
  2. VIOXX [Suspect]
     Route: 065
     Dates: start: 20031201, end: 20041101
  3. ECOTRIN [Concomitant]
     Route: 065
  4. NEXIUM [Concomitant]
     Route: 065
  5. ENALAPRIL MALEATE [Concomitant]
     Route: 065
  6. PLAVIX [Concomitant]
     Route: 065
  7. ISOSORBIDE [Concomitant]
     Route: 065
  8. METOPROLOL [Concomitant]
     Route: 065
  9. WELCHOL [Concomitant]
     Route: 065

REACTIONS (7)
  - CHEST PAIN [None]
  - CORONARY ARTERY DISEASE [None]
  - DIZZINESS [None]
  - MYOCARDIAL INFARCTION [None]
  - PAIN IN EXTREMITY [None]
  - POLLAKIURIA [None]
  - SYNCOPE [None]
